FAERS Safety Report 6108173-X (Version None)
Quarter: 2009Q1

REPORT INFORMATION
  Report Type: 
  Country: None (occurrence: None)
  Receive Date: 20090309
  Receipt Date: 20090223
  Transmission Date: 20090719
  Serious: Yes (Hospitalization, Other)
  Sender: FDA-Public Use
  Company Number: US-ROCHE-614314

PATIENT
  Age: 56 Year
  Sex: Female

DRUGS (4)
  1. BONIVA [Suspect]
     Indication: OSTEOPOROSIS
     Route: 065
  2. METHOTREXATE [Suspect]
     Route: 065
  3. STEROID NOS [Concomitant]
  4. VIVELLE [Concomitant]
     Dosage: HORMONAL PATCH FOR FIFTEEN YEARS
     Dates: start: 19940101

REACTIONS (4)
  - ANAEMIA [None]
  - DISEASE PROGRESSION [None]
  - HIP ARTHROPLASTY [None]
  - TRANSFUSION REACTION [None]
